FAERS Safety Report 22207570 (Version 1)
Quarter: 2023Q2

REPORT INFORMATION
  Report Type: Spontaneous
  Country: PT (occurrence: PT)
  Receive Date: 20230413
  Receipt Date: 20230413
  Transmission Date: 20230721
  Serious: Yes (Death, Other)
  Sender: FDA-Public Use
  Company Number: PT-009507513-2111PRT005439

PATIENT
  Age: 48 Year
  Sex: Female

DRUGS (2)
  1. PACLITAXEL [Suspect]
     Active Substance: PACLITAXEL
     Indication: Triple negative breast cancer
     Dosage: UNK
     Route: 065
     Dates: end: 202104
  2. PEMBROLIZUMAB [Suspect]
     Active Substance: PEMBROLIZUMAB
     Indication: Triple negative breast cancer
     Dosage: UNK
     Route: 065
     Dates: end: 202104

REACTIONS (10)
  - Bone marrow failure [Fatal]
  - Anaemia [Fatal]
  - Thrombocytopenia [Fatal]
  - Tumour haemorrhage [Fatal]
  - Death [Fatal]
  - Malignant neoplasm progression [None]
  - Pancytopenia [None]
  - Therapy non-responder [None]
  - Drug ineffective [None]
  - Therapeutic response decreased [None]

NARRATIVE: CASE EVENT DATE: 20210101
